FAERS Safety Report 16119424 (Version 1)
Quarter: 2019Q1

REPORT INFORMATION
  Report Type: Spontaneous
  Country: FR (occurrence: FR)
  Receive Date: 20190326
  Receipt Date: 20190326
  Transmission Date: 20190418
  Serious: Yes (Other)
  Sender: FDA-Public Use
  Company Number: FR-PFIZER INC-2019123704

PATIENT
  Age: 32 Year
  Sex: Female

DRUGS (3)
  1. IBUPROFEN. [Suspect]
     Active Substance: IBUPROFEN
     Indication: PAIN
     Dosage: UNK (UNSPECIFIED)
     Route: 048
     Dates: start: 20190220, end: 20190220
  2. VOGALENE [Suspect]
     Active Substance: METOPIMAZINE
     Indication: PAIN
     Dosage: UNK (UNSPECIFIED)
     Route: 048
     Dates: start: 20190220, end: 20190220
  3. MISOONE [Suspect]
     Active Substance: MISOPROSTOL
     Indication: ABORTION INDUCED
     Dosage: 1 DF, UNK
     Route: 048
     Dates: start: 20190220, end: 20190220

REACTIONS (1)
  - Angioedema [Recovering/Resolving]

NARRATIVE: CASE EVENT DATE: 20190220
